FAERS Safety Report 7686444-3 (Version None)
Quarter: 2011Q3

REPORT INFORMATION
  Report Type: 
  Country: None (occurrence: None)
  Receive Date: 20110816
  Receipt Date: 20110809
  Transmission Date: 20111222
  Serious: Yes (Life-Threatening, Hospitalization)
  Sender: FDA-Public Use
  Company Number: CA-SANOFI-AVENTIS-2011SA050855

PATIENT
  Age: 58 Year
  Sex: Female
  Weight: 69 kg

DRUGS (9)
  1. ASPIRIN [Concomitant]
     Route: 048
     Dates: start: 19910101
  2. DILTIAZEM [Concomitant]
     Route: 048
     Dates: start: 19910101
  3. OXALIPLATIN [Suspect]
     Indication: COLORECTAL CANCER
     Route: 042
     Dates: start: 20110805, end: 20110805
  4. ATORVASTATIN [Concomitant]
     Route: 048
     Dates: start: 19910101
  5. FLUOROURACIL [Suspect]
     Indication: COLORECTAL CANCER
     Route: 042
     Dates: start: 20110805, end: 20110805
  6. LEUCOVORIN CALCIUM [Suspect]
     Indication: COLORECTAL CANCER
     Route: 042
     Dates: start: 20110805, end: 20110805
  7. COLACE [Concomitant]
     Route: 048
     Dates: start: 20110501
  8. CALCIUM/MAGNESIUM [Suspect]
     Indication: COLORECTAL CANCER
     Route: 042
     Dates: start: 20110805, end: 20110805
  9. TYLENOL-500 [Concomitant]
     Route: 048
     Dates: start: 20101101

REACTIONS (1)
  - MYOCARDIAL INFARCTION [None]
